FAERS Safety Report 16804099 (Version 2)
Quarter: 2020Q3

REPORT INFORMATION
  Report Type: Spontaneous
  Country: NL (occurrence: NL)
  Receive Date: 20190913
  Receipt Date: 20200923
  Transmission Date: 20201102
  Serious: Yes (Other)
  Sender: FDA-Public Use
  Company Number: NL-AUROBINDO-AUR-APL-2019-059609

PATIENT
  Age: 81 Year
  Sex: Male
  Weight: 71 kg

DRUGS (8)
  1. QUETIAPINE FILM?COATED TABLETS 25MG [Suspect]
     Active Substance: QUETIAPINE
     Indication: ANXIETY
  2. HYDROCHLOORTHIAZIDE [Concomitant]
     Active Substance: HYDROCHLOROTHIAZIDE
     Indication: PRODUCT USED FOR UNKNOWN INDICATION
     Dosage: 12 MILLIGRAM, ONCE A DAY
     Route: 065
  3. OXAZEPAM. [Concomitant]
     Active Substance: OXAZEPAM
     Indication: PRODUCT USED FOR UNKNOWN INDICATION
     Dosage: 10 MILLIGRAM, ONCE A DAY
     Route: 065
  4. QUETIAPINE FILM?COATED TABLETS 25MG [Suspect]
     Active Substance: QUETIAPINE
     Indication: DEPRESSED MOOD
     Dosage: 25 MILLIGRAM, ONCE A DAY,1DD 25MG
     Route: 048
     Dates: start: 20190722, end: 20190806
  5. QUETIAPINE FILM?COATED TABLETS 25MG [Suspect]
     Active Substance: QUETIAPINE
     Indication: INSOMNIA
  6. CYANOCOBALAMINE [Concomitant]
     Active Substance: CYANOCOBALAMIN
     Indication: PRODUCT USED FOR UNKNOWN INDICATION
     Dosage: 1000 MICROGRAM, ONCE A DAY
     Route: 065
  7. CITALOPRAM [Concomitant]
     Active Substance: CITALOPRAM HYDROBROMIDE
     Indication: PRODUCT USED FOR UNKNOWN INDICATION
     Dosage: 20 MILLIGRAM, ONCE A DAY
     Route: 065
  8. PANTOZOL [Concomitant]
     Active Substance: PANTOPRAZOLE SODIUM
     Indication: PRODUCT USED FOR UNKNOWN INDICATION
     Dosage: 40 MILLIGRAM, TWO TIMES A DAY
     Route: 065

REACTIONS (2)
  - Hypokalaemia [Unknown]
  - Diarrhoea [Recovering/Resolving]

NARRATIVE: CASE EVENT DATE: 20190726
